FAERS Safety Report 6505673-5 (Version None)
Quarter: 2009Q4

REPORT INFORMATION
  Report Type: 
  Country: None (occurrence: None)
  Receive Date: 20091218
  Receipt Date: 20091214
  Transmission Date: 20100525
  Serious: Yes (Death)
  Sender: FDA-Public Use
  Company Number: A0832900A

PATIENT
  Sex: Female

DRUGS (2)
  1. ZOFRAN [Suspect]
     Indication: DRUG USE FOR UNKNOWN INDICATION
     Dosage: 8MG UNKNOWN
     Route: 065
  2. AVANDIA [Suspect]
     Indication: DRUG USE FOR UNKNOWN INDICATION
     Dosage: 4MG UNKNOWN
     Route: 065

REACTIONS (1)
  - NEOPLASM MALIGNANT [None]
